FAERS Safety Report 6528855-5 (Version None)
Quarter: 2010Q1

REPORT INFORMATION
  Report Type: 
  Country: None (occurrence: None)
  Receive Date: 20100106
  Receipt Date: 20091223
  Transmission Date: 20100710
  Serious: Yes (Hospitalization)
  Sender: FDA-Public Use
  Company Number: GB-BAUSCH-2009BL006768

PATIENT
  Age: 42 Year
  Sex: Female

DRUGS (9)
  1. DEXAMETHASONE [Suspect]
     Indication: MENINGIOMA
     Route: 048
     Dates: start: 20091116, end: 20091125
  2. PHENYTOIN [Suspect]
     Indication: MENINGIOMA
     Route: 048
     Dates: start: 20091116, end: 20091209
  3. AMOXICILLIN [Concomitant]
     Indication: DRUG USE FOR UNKNOWN INDICATION
  4. CYCLIZINE [Concomitant]
     Indication: DRUG USE FOR UNKNOWN INDICATION
  5. FERROUS SULFATE TAB [Concomitant]
     Indication: DRUG USE FOR UNKNOWN INDICATION
  6. METRONIDAZOLE [Concomitant]
     Indication: DRUG USE FOR UNKNOWN INDICATION
  7. NYSTATIN [Concomitant]
     Indication: DRUG USE FOR UNKNOWN INDICATION
  8. OMEPRAZOLE [Concomitant]
     Indication: DRUG USE FOR UNKNOWN INDICATION
  9. PARACETAMOL [Concomitant]
     Indication: DRUG USE FOR UNKNOWN INDICATION

REACTIONS (2)
  - LIVER FUNCTION TEST ABNORMAL [None]
  - MOUTH ULCERATION [None]
